FAERS Safety Report 5274600-3 (Version None)
Quarter: 2007Q1

REPORT INFORMATION
  Report Type: 
  Country: None (occurrence: None)
  Receive Date: 20070320
  Receipt Date: 20070308
  Transmission Date: 20070707
  Serious: Yes (Death)
  Sender: FDA-Public Use
  Company Number: FABR-11823

PATIENT
  Age: 52 Year
  Sex: Male
  Weight: 49.7 kg

DRUGS (3)
  1. FABRAZYME [Suspect]
     Indication: FABRY'S DISEASE
     Dosage: 1.3 MG/KG Q2WKS IV
     Route: 042
     Dates: end: 20061226
  2. FABRAZYME [Suspect]
     Indication: FABRY'S DISEASE
     Dosage: 3 MG/KG Q2WKS IV
     Route: 042
     Dates: start: 20030101
  3. FABRAZYME [Suspect]
     Indication: FABRY'S DISEASE
     Dosage: 1.3 MG/KG Q2WKS IV
     Route: 042
     Dates: start: 20010314

REACTIONS (21)
  - AMPUTATION OF PENIS [None]
  - AORTIC VALVE CALCIFICATION [None]
  - AORTIC VALVE STENOSIS [None]
  - CACHEXIA [None]
  - COMPLICATIONS OF TRANSPLANTED KIDNEY [None]
  - CORONARY ARTERY DISEASE [None]
  - GANGRENE [None]
  - HYDROTHORAX [None]
  - LEG AMPUTATION [None]
  - MITRAL VALVE CALCIFICATION [None]
  - MITRAL VALVE STENOSIS [None]
  - MYOCARDITIS [None]
  - PERICARDIAL EFFUSION [None]
  - RENAL ATROPHY [None]
  - RENAL FAILURE [None]
  - SEPSIS [None]
  - TRANSPLANT REJECTION [None]
  - URINARY TRACT INFECTION [None]
  - VENOUS STASIS [None]
  - VENTRICULAR HYPERTROPHY [None]
  - WEIGHT DECREASED [None]
